FAERS Safety Report 24639837 (Version 1)
Quarter: 2024Q4

REPORT INFORMATION
  Report Type: Spontaneous
  Country: US (occurrence: US)
  Receive Date: 20241120
  Receipt Date: 20241120
  Transmission Date: 20250115
  Serious: No
  Sender: ALVOGEN
  Company Number: US-ALVOGEN-2023092839

PATIENT
  Age: 69 Year
  Sex: Female

DRUGS (2)
  1. TERIPARATIDE [Suspect]
     Active Substance: TERIPARATIDE
     Indication: Osteoporosis
     Dosage: TAKING FOR 3 MONTHS DAILY?1 INJECTION A DAY?EXPIRATION DATE: UU-OCT-2024?STRENGTH: 250MCG/ML
     Route: 058
     Dates: start: 202309, end: 202401
  2. VITAMIN B12 [Concomitant]
     Active Substance: CYANOCOBALAMIN
     Indication: Product used for unknown indication

REACTIONS (6)
  - Heart valve incompetence [Unknown]
  - Condition aggravated [Unknown]
  - Gingivitis [Unknown]
  - Palpitations [Unknown]
  - Dizziness [Recovered/Resolved]
  - Intentional dose omission [Unknown]

NARRATIVE: CASE EVENT DATE: 20231201
